FAERS Safety Report 9404822 (Version 1)
Quarter: 2013Q3

REPORT INFORMATION
  Report Type: Spontaneous
  Country: US (occurrence: US)
  Receive Date: 20130717
  Receipt Date: 20130717
  Transmission Date: 20140515
  Serious: No
  Sender: FDA-Public Use
  Company Number: US-PFIZER INC-2013206027

PATIENT
  Age: 60 Year
  Sex: Female

DRUGS (1)
  1. LEVOXYL [Suspect]
     Dosage: UNK

REACTIONS (4)
  - Palpitations [Unknown]
  - Local swelling [Unknown]
  - Pain in extremity [Unknown]
  - Weight increased [Unknown]
